FAERS Safety Report 6709603-2 (Version None)
Quarter: 2010Q2

REPORT INFORMATION
  Report Type: 
  Country: None (occurrence: None)
  Receive Date: 20100503
  Receipt Date: 20100503
  Transmission Date: 20101027
  Serious: No
  Sender: FDA-Public Use
  Company Number: None

PATIENT
  Age: 5 Month
  Sex: Male
  Weight: 8.1647 kg

DRUGS (2)
  1. CONCENTRATED TYLENOL INFANT DROPS [Suspect]
  2. CONCENTRATED MOTRIN INFANTS DROPS [Suspect]

REACTIONS (3)
  - FEELING ABNORMAL [None]
  - LETHARGY [None]
  - PRODUCT QUALITY ISSUE [None]
